FAERS Safety Report 15977264 (Version 3)
Quarter: 2020Q1

REPORT INFORMATION
  Report Type: Spontaneous
  Country: JP (occurrence: JP)
  Receive Date: 20190218
  Receipt Date: 20200217
  Transmission Date: 20200409
  Serious: Yes (Hospitalization)
  Sender: FDA-Public Use
  Company Number: JP-ELI_LILLY_AND_COMPANY-JP201902006344

PATIENT
  Age: 74 Year
  Sex: Male

DRUGS (5)
  1. ERBITUX [Suspect]
     Active Substance: CETUXIMAB
     Indication: COLON CANCER METASTATIC
     Dosage: 610 MG, UNKNOWN
     Route: 041
     Dates: start: 20190130, end: 20190130
  2. FLUOROURACIL. [Suspect]
     Active Substance: FLUOROURACIL
     Indication: COLON CANCER METASTATIC
     Dosage: 3600 (UNSPECIFIED UNITS), UNKNOWN
     Route: 041
     Dates: start: 20190130, end: 20190130
  3. OXALIPLATIN. [Suspect]
     Active Substance: OXALIPLATIN
     Indication: COLON CANCER METASTATIC
     Dosage: 30 (UNSPECIFIED UNITS), UNKNOWN
     Route: 041
     Dates: start: 20190130, end: 20190130
  4. LEVOFOLINATE CALCIUM [Concomitant]
     Active Substance: LEVOLEUCOVORIN CALCIUM
     Indication: COLON CANCER METASTATIC
     Dosage: 300 (UNSPECIFIED UNITS), UNKNOWN
     Route: 041
     Dates: start: 20190130, end: 20190130
  5. CPT-11 [Suspect]
     Active Substance: IRINOTECAN HYDROCHLORIDE
     Indication: COLON CANCER METASTATIC
     Dosage: 230 (UNSPECIFIED UNITS), UNKNOWN
     Route: 041
     Dates: start: 20190130, end: 20190130

REACTIONS (1)
  - Febrile neutropenia [Recovered/Resolved]

NARRATIVE: CASE EVENT DATE: 20190207
